FAERS Safety Report 5519816-3 (Version None)
Quarter: 2007Q4

REPORT INFORMATION
  Report Type: 
  Country: None (occurrence: None)
  Receive Date: 20071116
  Receipt Date: 20070824
  Transmission Date: 20080405
  Serious: No
  Sender: FDA-Public Use
  Company Number: A0677430A

PATIENT

DRUGS (3)
  1. COREG CR [Suspect]
     Indication: DRUG USE FOR UNKNOWN INDICATION
  2. COREG [Suspect]
     Indication: DRUG USE FOR UNKNOWN INDICATION
  3. COUMADIN [Suspect]
     Indication: DRUG USE FOR UNKNOWN INDICATION

REACTIONS (2)
  - ADVERSE EVENT [None]
  - DRUG INTERACTION [None]
